FAERS Safety Report 8354587-7 (Version None)
Quarter: 2012Q2

REPORT INFORMATION
  Report Type: 
  Country: None (occurrence: None)
  Receive Date: 20120511
  Receipt Date: 20120502
  Transmission Date: 20120825
  Serious: Yes (Hospitalization, Disabling, Other)
  Sender: FDA-Public Use
  Company Number: US-MERCK-1111USA02618

PATIENT
  Age: 59 Year
  Sex: Female
  Weight: 120 kg

DRUGS (7)
  1. BONIVA [Suspect]
     Indication: OSTEOPOROSIS
     Route: 048
     Dates: start: 20070529, end: 20070718
  2. ALENDRONATE SODIUM [Suspect]
     Route: 048
     Dates: start: 20080801
  3. ASCORBIC ACID [Concomitant]
     Route: 065
     Dates: start: 20050101
  4. SINGULAIR [Concomitant]
     Indication: HYPERSENSITIVITY
     Route: 048
  5. FOSAMAX [Suspect]
     Indication: OSTEOPOROSIS
     Route: 048
     Dates: start: 20070719, end: 20090622
  6. CALCIUM (UNSPECIFIED) AND VITAMIN D (UNSPECIFIED) [Concomitant]
     Route: 065
     Dates: start: 20050101
  7. LYSINE [Concomitant]
     Route: 065
     Dates: start: 20050101

REACTIONS (17)
  - ILEUS [None]
  - HYPERTENSION [None]
  - ASTHMA [None]
  - TACHYCARDIA [None]
  - CHRONIC OBSTRUCTIVE PULMONARY DISEASE [None]
  - FEMUR FRACTURE [None]
  - GASTROINTESTINAL DISORDER [None]
  - BLOOD CHOLESTEROL INCREASED [None]
  - HAEMORRHAGIC ANAEMIA [None]
  - INTESTINAL MALROTATION [None]
  - INGUINAL HERNIA [None]
  - INTESTINAL DILATATION [None]
  - DEVICE FAILURE [None]
  - UTERINE LEIOMYOMA [None]
  - NEPHROLITHIASIS [None]
  - SLEEP APNOEA SYNDROME [None]
  - FALL [None]
